FAERS Safety Report 5327858-6 (Version None)
Quarter: 2007Q2

REPORT INFORMATION
  Report Type: 
  Country: None (occurrence: None)
  Receive Date: 20070514
  Receipt Date: 20070502
  Transmission Date: 20071010
  Serious: Yes (Hospitalization, Other)
  Sender: FDA-Public Use
  Company Number: 2007AL001863

PATIENT
  Age: 4 Week
  Sex: 0

DRUGS (1)
  1. DEXAMETHASONE [Suspect]
     Indication: MECHANICAL VENTILATION
     Dates: start: 20030101

REACTIONS (2)
  - CEREBELLAR ATROPHY [None]
  - CEREBRAL ATROPHY [None]
